FAERS Safety Report 10484157 (Version 2)
Quarter: 2014Q4

REPORT INFORMATION
  Report Type: Spontaneous
  Country: US (occurrence: None)
  Receive Date: 20140926
  Receipt Date: 20141006
  Transmission Date: 20150528
  Serious: Yes (Other)
  Sender: FDA-Public Use
  Company Number: ADR-2014-01738

PATIENT
  Sex: Female

DRUGS (2)
  1. LIORESAL [Suspect]
     Active Substance: BACLOFEN
     Indication: MUSCLE SPASTICITY
  2. LIORESAL [Suspect]
     Active Substance: BACLOFEN

REACTIONS (7)
  - Weight decreased [None]
  - Implant site warmth [None]
  - Hypotension [None]
  - Medical device discomfort [None]
  - Neoplasm malignant [None]
  - Muscle atrophy [None]
  - Carcinoid syndrome [None]
